FAERS Safety Report 5226413-6 (Version None)
Quarter: 2007Q1

REPORT INFORMATION
  Report Type: 
  Country: None (occurrence: None)
  Receive Date: 20070201
  Receipt Date: 20070122
  Transmission Date: 20070707
  Serious: Yes (Death)
  Sender: FDA-Public Use
  Company Number: PH-PFIZER INC-2007005848

PATIENT
  Sex: Female
  Weight: 69 kg

DRUGS (2)
  1. SULPERAZONE [Suspect]
     Indication: SKIN INFECTION
     Route: 042
     Dates: start: 20060819, end: 20060826
  2. SULPERAZONE [Suspect]
     Indication: SOFT TISSUE INFECTION

REACTIONS (1)
  - DEATH [None]
